FAERS Safety Report 9706522 (Version 1)
Quarter: 2013Q4

REPORT INFORMATION
  Report Type: Spontaneous
  Country: IT (occurrence: IT)
  Receive Date: 20131125
  Receipt Date: 20131125
  Transmission Date: 20140711
  Serious: Yes (Other)
  Sender: FDA-Public Use
  Company Number: IT-JNJFOC-20131109066

PATIENT
  Sex: Female

DRUGS (1)
  1. XEPLION [Suspect]
     Indication: PRODUCT USED FOR UNKNOWN INDICATION
     Route: 030

REACTIONS (1)
  - Blood pressure increased [Unknown]
